FAERS Safety Report 6673988-6 (Version None)
Quarter: 2010Q2

REPORT INFORMATION
  Report Type: 
  Country: None (occurrence: None)
  Receive Date: 20100407
  Receipt Date: 20100401
  Transmission Date: 20101027
  Serious: Yes (Death, Hospitalization, Other)
  Sender: FDA-Public Use
  Company Number: SPV1-2010-00614

PATIENT
  Age: 65 Year
  Sex: Male
  Weight: 78 kg

DRUGS (18)
  1. FOSRENOL [Suspect]
     Indication: DRUG USE FOR UNKNOWN INDICATION
  2. HEPARIN [Suspect]
     Indication: THROMBOSIS PROPHYLAXIS
     Dates: start: 20071102
  3. RENAGEL [Suspect]
     Indication: DRUG USE FOR UNKNOWN INDICATION
     Dosage: 1600 MG, EVERY DAY
  4. ALBUTEROL /00139501/ (SALBUTAMOL) [Concomitant]
  5. ALPHAGAN /0131101/ (BRIMONIDINE) [Concomitant]
  6. AMBIEN (ZOLPIDEM TRATRATE) [Concomitant]
  7. VITAMIN B COMPLEX /00003501/ (CALCIUM PANTOTHENATE, NICOTINAMIDE, PYRI [Concomitant]
  8. CLOTRIMAZOLE [Concomitant]
  9. COREG [Concomitant]
  10. DIGOXIN [Concomitant]
  11. IMODIUM A-D (LOPERAMIDE HYDROCHLORIDE) TABLET [Concomitant]
  12. MAGNESIUM OXIDE (MAGNESIUM OXIDE) CAPSULE [Concomitant]
  13. PROTONIX [Concomitant]
  14. VICODIN [Concomitant]
  15. ASPIRIN [Concomitant]
  16. WARFARIN SODIUM [Concomitant]
  17. ALLOPURINOL [Concomitant]
  18. NOVOLOG [Concomitant]

REACTIONS (15)
  - ABDOMINAL PAIN [None]
  - CHOLECYSTECTOMY [None]
  - DIARRHOEA [None]
  - DRUG INTOLERANCE [None]
  - DYSPNOEA [None]
  - DYSPNOEA EXERTIONAL [None]
  - GASTRIC VARICES [None]
  - HELICOBACTER INFECTION [None]
  - HEPATIC FAILURE [None]
  - NAUSEA [None]
  - OEDEMA PERIPHERAL [None]
  - OESOPHAGITIS ULCERATIVE [None]
  - RENAL FAILURE [None]
  - RESPIRATORY FAILURE [None]
  - VOMITING [None]
